FAERS Safety Report 16345081 (Version 2)
Quarter: 2019Q2

REPORT INFORMATION
  Report Type: Spontaneous
  Country: FR (occurrence: FR)
  Receive Date: 20190523
  Receipt Date: 20190605
  Transmission Date: 20190711
  Serious: Yes (Hospitalization, Other)
  Sender: FDA-Public Use
  Company Number: FR-SA-200311282FR

PATIENT
  Age: 44 Year
  Sex: Male

DRUGS (12)
  1. ATORVASTATIN CALCIUM. [Suspect]
     Active Substance: ATORVASTATIN CALCIUM
     Indication: UNEVALUABLE EVENT
     Dosage: UNK
     Route: 048
  2. TRINITRINE [Concomitant]
     Active Substance: NITROGLYCERIN
     Indication: CHEST PAIN
     Dosage: UNK UNK, QD
     Route: 048
     Dates: start: 20030225, end: 20030225
  3. DAONIL [Suspect]
     Active Substance: GLYBURIDE
     Dosage: UNK
  4. DAONIL [Suspect]
     Active Substance: GLYBURIDE
     Indication: TYPE 2 DIABETES MELLITUS
     Dosage: 3 DF, QD
     Route: 048
  5. CELECOXIB. [Suspect]
     Active Substance: CELECOXIB
     Indication: UNEVALUABLE EVENT
     Dosage: 2 DF,QD
     Route: 048
     Dates: start: 20030225, end: 20030225
  6. ACARBOSE. [Suspect]
     Active Substance: ACARBOSE
     Dosage: 3 DF, QD
     Route: 048
  7. FELODIPINE. [Suspect]
     Active Substance: FELODIPINE
     Indication: UNEVALUABLE EVENT
     Dosage: 5 MG,QD
     Route: 048
  8. HYDROCHLOROTHIAZIDE. [Suspect]
     Active Substance: HYDROCHLOROTHIAZIDE
     Indication: HYPERTENSION
     Dosage: 1 DF, QD (1 DF,QD FILM COATED TABLET)
     Route: 048
  9. CELECOXIB. [Suspect]
     Active Substance: CELECOXIB
     Dosage: UNK
     Route: 048
  10. ATORVASTATIN CALCIUM. [Suspect]
     Active Substance: ATORVASTATIN CALCIUM
     Dosage: 1 DF,QD
     Route: 048
  11. HYDROCHLOROTHIAZIDE. [Suspect]
     Active Substance: HYDROCHLOROTHIAZIDE
     Indication: PRODUCT USED FOR UNKNOWN INDICATION
     Dosage: UNK
  12. ACARBOSE. [Suspect]
     Active Substance: ACARBOSE
     Indication: UNEVALUABLE EVENT
     Dosage: 1 DF,QD
     Route: 048

REACTIONS (2)
  - Angina pectoris [Unknown]
  - Chest pain [Recovered/Resolved]

NARRATIVE: CASE EVENT DATE: 20030225
